FAERS Safety Report 21655487 (Version 1)
Quarter: 2022Q4

REPORT INFORMATION
  Report Type: Report from Study
  Country: US (occurrence: US)
  Receive Date: 20221129
  Receipt Date: 20221129
  Transmission Date: 20230112
  Serious: Yes (Other)
  Sender: FDA-Public Use
  Company Number: US-ABBVIE-4211453

PATIENT
  Sex: Female

DRUGS (5)
  1. HUMIRA [Suspect]
     Active Substance: ADALIMUMAB
     Indication: Ankylosing spondylitis
     Dosage: START DATE ON AN UNSPECIFIED DATE OF 2020, FORM STRENGTH : 40 MG
     Route: 058
     Dates: start: 2020
  2. HUMIRA [Suspect]
     Active Substance: ADALIMUMAB
     Dosage: START DATE TEXT: MORE THAN 5 YEARS, STOP DATE ON AN UNSPECIFIED DATE OF 2020, FORM STRENGTH : 40 MG
     Route: 058
     Dates: end: 2020
  3. ATENOLOL [Concomitant]
     Active Substance: ATENOLOL
     Indication: Hypertension
     Route: 065
  4. DULOXETINE [Concomitant]
     Active Substance: DULOXETINE
     Indication: Pain
     Route: 065
  5. VITAMIN D3 [Concomitant]
     Active Substance: CHOLECALCIFEROL
     Indication: Product used for unknown indication
     Route: 065

REACTIONS (1)
  - Cataract [Recovered/Resolved]
